FAERS Safety Report 17794541 (Version 1)
Quarter: 2020Q2

REPORT INFORMATION
  Report Type: Report from Study
  Country: AU (occurrence: AU)
  Receive Date: 20200515
  Receipt Date: 20200515
  Transmission Date: 20200714
  Serious: Yes (Hospitalization, Other)
  Sender: FDA-Public Use
  Company Number: AU-GLAXOSMITHKLINE-B0596994A

PATIENT
  Age: 79 Year
  Sex: Male

DRUGS (2)
  1. OMEGA-3-ACID ETHYL ESTERS. [Suspect]
     Active Substance: OMEGA-3-ACID ETHYL ESTERS
     Indication: THROMBOSIS PROPHYLAXIS
     Dosage: 4000 MG
     Route: 048
     Dates: start: 20090813, end: 20090915
  2. ACETYLSALICYLIC ACID [Suspect]
     Active Substance: ASPIRIN
     Dosage: 100 MG
     Route: 048
     Dates: start: 20090813, end: 20090915

REACTIONS (10)
  - Nausea [Unknown]
  - Haematochezia [Unknown]
  - Abdominal pain [Unknown]
  - Gastrointestinal sounds abnormal [Unknown]
  - Flatulence [Unknown]
  - Fall [Recovered/Resolved]
  - Decreased appetite [Unknown]
  - Upper gastrointestinal haemorrhage [Recovered/Resolved]
  - Melaena [Unknown]
  - Constipation [Unknown]

NARRATIVE: CASE EVENT DATE: 20090915
